FAERS Safety Report 17428456 (Version 1)
Quarter: 2020Q1

REPORT INFORMATION
  Report Type: Spontaneous
  Country: US (occurrence: JP)
  Receive Date: 20200217
  Receipt Date: 20200217
  Transmission Date: 20200409
  Serious: Yes (Death)
  Sender: FDA-Public Use
  Company Number: JP-ALLERGAN-2007052US

PATIENT
  Sex: Male

DRUGS (8)
  1. ASENAPINE MALEATE - BP [Suspect]
     Active Substance: ASENAPINE MALEATE
     Indication: DELIRIUM
  2. TRAZODONE [Suspect]
     Active Substance: TRAZODONE HYDROCHLORIDE
     Indication: DELIRIUM
     Dosage: 100 MG, QD
     Route: 048
     Dates: start: 20190427, end: 20190429
  3. ASENAPINE MALEATE - BP [Suspect]
     Active Substance: ASENAPINE MALEATE
     Indication: HALLUCINATION
     Dosage: 10 MG, QD
     Route: 048
     Dates: start: 20190425, end: 20190426
  4. FLUNITRAZEPAM [Concomitant]
     Active Substance: FLUNITRAZEPAM
     Dosage: UNK
     Dates: end: 201904
  5. ASENAPINE MALEATE - BP [Suspect]
     Active Substance: ASENAPINE MALEATE
     Indication: DELUSION
  6. TRAZODONE [Suspect]
     Active Substance: TRAZODONE HYDROCHLORIDE
     Indication: INSOMNIA
     Dosage: 100 MG, QD
     Route: 048
     Dates: start: 20190425, end: 20190426
  7. NICERGOLINE [Concomitant]
     Active Substance: NICERGOLINE
     Indication: INSOMNIA
     Dosage: UNK
     Route: 048
     Dates: start: 20190324, end: 20190426
  8. NICERGOLINE [Concomitant]
     Active Substance: NICERGOLINE
     Indication: DELIRIUM

REACTIONS (4)
  - Pulmonary embolism [Fatal]
  - Off label use [Unknown]
  - Intentional product misuse [Unknown]
  - Somnolence [Unknown]

NARRATIVE: CASE EVENT DATE: 20190425
